FAERS Safety Report 5333869-7 (Version None)
Quarter: 2007Q2

REPORT INFORMATION
  Report Type: 
  Country: None (occurrence: None)
  Receive Date: 20070524
  Receipt Date: 20070510
  Transmission Date: 20071010
  Serious: Yes (Other)
  Sender: FDA-Public Use
  Company Number: US-SHR-US-2007-006376

PATIENT
  Age: 63 Year
  Sex: Male

DRUGS (47)
  1. MAGNEVIST [Suspect]
     Indication: NUCLEAR MAGNETIC RESONANCE IMAGING
     Dosage: 20 ML, 1 DOSE
     Route: 042
     Dates: start: 19991211, end: 19991211
  2. MAGNEVIST [Suspect]
     Dosage: 20 ML, 1 DOSE
     Route: 042
     Dates: start: 20020630, end: 20020630
  3. MAGNEVIST [Suspect]
     Dosage: 20 ML, 1 DOSE
     Route: 042
     Dates: start: 20020912, end: 20020912
  4. MAGNEVIST [Suspect]
     Dosage: 20 ML, 1 DOSE
     Route: 042
     Dates: start: 20031016, end: 20031016
  5. MAGNEVIST [Suspect]
     Dosage: 20 ML, 1 DOSE
     Route: 042
     Dates: start: 20060609, end: 20060609
  6. PRILOSEC [Concomitant]
     Dates: start: 19990827
  7. ZOLOFT [Concomitant]
     Dates: start: 19990827
  8. NEPHROCAPS [Concomitant]
     Dates: start: 19990827
  9. NEPHROCAPS [Concomitant]
     Dosage: 2 CAP(S), OTHER
     Dates: start: 20060808
  10. CALCIUM CARBONATE [Concomitant]
     Dates: start: 19990827
  11. ROCALTROL [Concomitant]
     Dates: start: 19990827
  12. EPOGEN [Concomitant]
     Dosage: 6000 UNK, 3X/WEEK
     Dates: start: 19990827
  13. EPOGEN [Concomitant]
     Dosage: 10000 UNK, 3X/WEEK
  14. EPOGEN [Concomitant]
     Dosage: 3000 UNK, 3X/WEEK
     Dates: start: 20050619, end: 20051001
  15. DIAZEPAM [Concomitant]
     Dosage: 5 MG, UNK
     Dates: start: 19990827
  16. TYLENOL [Concomitant]
     Dates: start: 19990908
  17. LIPITOR [Concomitant]
     Dosage: 10 MG, 1X/DAY
     Route: 048
     Dates: start: 19990908
  18. MIACALCIN [Concomitant]
     Dosage: 200 UNK, 1X/DAY
     Route: 058
     Dates: start: 19990908
  19. COLACE [Concomitant]
     Dates: start: 19990908
  20. COLACE [Concomitant]
     Dosage: UNK, 2X/DAY
     Dates: start: 20060625
  21. COLACE [Concomitant]
     Dosage: 100 MG, 2X/DAY
     Dates: start: 20060808
  22. DULCOLAX [Concomitant]
     Dates: start: 19990908
  23. DROPERIDOL [Concomitant]
     Dates: start: 19990908
  24. SENOKOT                                 /UNK/ [Concomitant]
     Dates: start: 19990908
  25. ASPIRIN [Concomitant]
     Dates: start: 20050619
  26. OMEPRAZOLE [Concomitant]
     Dosage: 40 MG, 1X/DAY
     Route: 048
     Dates: start: 20050619
  27. RENAGEL [Concomitant]
     Dosage: UNK, 3X/DAY
     Dates: start: 20050619
  28. REMERON                                 /SCH/ [Concomitant]
     Dosage: UNK, 1X/DAY
     Dates: start: 20050619
  29. REMERON                                 /SCH/ [Concomitant]
     Dosage: 30 MG, 2X/DAY
     Dates: start: 20060808
  30. EFFEXOR [Concomitant]
     Dosage: UNK, UNK
     Dates: start: 20050619
  31. EFFEXOR [Concomitant]
     Dosage: 300 MG, 1X/DAY
     Dates: start: 20060625
  32. MIRALAX [Concomitant]
     Dates: start: 20050619
  33. ZEMPLAR [Concomitant]
     Dosage: 8 A?G, 3X/WEEK
     Dates: start: 20050619
  34. ZEMPLAR [Concomitant]
     Dosage: UNK, OTHER
     Dates: start: 20060808
  35. UNSPECIFIED DRUG [Concomitant]
     Indication: HYPERPARATHYROIDISM
     Dosage: 180 MG, OTHER
     Dates: start: 20050619
  36. UNSPECIFIED DRUG [Concomitant]
     Dosage: 60 MG, 1X/DAY
     Dates: start: 20060625
  37. UNSPECIFIED DRUG [Concomitant]
     Dosage: 120 MG, 1X/DAY
     Dates: start: 20060808
  38. MYLANTA-II                              /USA/ [Concomitant]
  39. NEXIUM [Concomitant]
     Dosage: 40 MG, 1X/DAY
     Dates: start: 20060625
  40. FOLATE SODIUM [Concomitant]
     Dates: start: 20060625
  41. MIRALAX [Concomitant]
     Dosage: 1 TAB(S), 1X/DAY
     Dates: start: 20060625
  42. ZEMPLAR [Concomitant]
     Dosage: 17 A?G, OTHER
     Dates: start: 20060625
  43. ASPIRIN [Concomitant]
     Dosage: 81 MG, 1X/DAY
     Dates: start: 20060625
  44. MOTRIN [Concomitant]
     Dosage: 400 MG, UNK
     Dates: start: 20060625
  45. ARANESP [Concomitant]
     Dates: start: 20060819
  46. EFFEXOR XR [Concomitant]
     Dosage: 300 MG, 1X/DAY
     Dates: start: 20060808
  47. FOLIC ACID [Concomitant]
     Dosage: 1 MG, 1X/DAY
     Dates: start: 20060808

REACTIONS (1)
  - NEPHROGENIC FIBROSING DERMOPATHY [None]
